FAERS Safety Report 4714730-5 (Version None)
Quarter: 2005Q3

REPORT INFORMATION
  Report Type: 
  Country: None (occurrence: None)
  Receive Date: 20050715
  Receipt Date: 20050505
  Transmission Date: 20060218
  Serious: Yes (Hospitalization, Other)
  Sender: FDA-Public Use
  Company Number: US-BRISTOL-MYERS SQUIBB COMPANY-12957320

PATIENT
  Age: 68 Year
  Sex: Female
  Weight: 45 kg

DRUGS (15)
  1. CETUXIMAB [Suspect]
     Indication: NON-SMALL CELL LUNG CANCER
     Dosage: START DATE 16-FEB-05.TEMP.STOPPED.LOT #02C00486, EXP7/9/05, 04C00003A,EXP 4/07, 04C00002B, EXP3/07
     Route: 042
     Dates: start: 20050428, end: 20050428
  2. CARBOPLATIN [Suspect]
     Indication: NON-SMALL CELL LUNG CANCER
     Dosage: THERAPY START DATE 16-FEB-05. TEMPORARILY STOPPED. GIVEN ON 13-MAY-05, D/C.
     Route: 042
     Dates: start: 20050330, end: 20050330
  3. DOCETAXEL [Suspect]
     Indication: NON-SMALL CELL LUNG CANCER
     Dosage: THERAPY START DATE 16-FEB-05. TEMPORARILY STOPPED. GIVEN ON 13-MAY-05, D/C.
     Route: 042
     Dates: start: 20050330, end: 20050330
  4. ARANESP [Concomitant]
     Indication: ANAEMIA
     Route: 058
     Dates: start: 20050223
  5. HEPARIN [Concomitant]
     Indication: INTRAVENOUS CATHETER MANAGEMENT
     Dosage: DOSING = 1000 IU/ML EVERY WEEK
     Route: 042
     Dates: start: 20050216
  6. ZANTAC [Concomitant]
     Indication: ANTIEMETIC SUPPORTIVE CARE
     Route: 042
     Dates: start: 20050216
  7. DECADRON [Concomitant]
     Indication: ANTIEMETIC SUPPORTIVE CARE
     Dosage: 16 MG TWICE PER DAY X 3 DAYS EVERY 21 DAYS.
     Route: 048
     Dates: start: 20050215
  8. DECADRON [Concomitant]
     Route: 042
     Dates: start: 20050216
  9. ALOXI [Concomitant]
     Indication: ANTIEMETIC SUPPORTIVE CARE
     Route: 042
     Dates: start: 20050216
  10. TYLENOL [Concomitant]
     Indication: ANAPHYLAXIS PROPHYLAXIS
     Route: 048
     Dates: start: 20050216
  11. BENADRYL [Concomitant]
     Indication: ANAPHYLAXIS PROPHYLAXIS
     Route: 042
     Dates: start: 20050216
  12. BENADRYL [Concomitant]
     Indication: STOMATITIS
     Route: 042
     Dates: start: 20050216
  13. BENADRYL [Concomitant]
     Dosage: MAALOX + BENADRYL EVERY 4-6 HOURS ORAL AS NEEDED
     Route: 048
     Dates: start: 20050302
  14. BENADRYL [Concomitant]
     Dosage: MAALOX + BENADRYL EVERY 4-6 HOURS ORAL AS NEEDED
     Route: 048
     Dates: start: 20050302
  15. MAALOX [Concomitant]
     Indication: STOMATITIS
     Dosage: MAALOX + BENADRYL, EVERY 4-6 HRS ORAL AS NEEDED
     Route: 048
     Dates: start: 20050302

REACTIONS (6)
  - ANAEMIA [None]
  - HYPOKALAEMIA [None]
  - HYPOMAGNESAEMIA [None]
  - HYPOTENSION [None]
  - PLEURAL EFFUSION [None]
  - SUPRAVENTRICULAR TACHYCARDIA [None]
